FAERS Safety Report 21334089 (Version 10)
Quarter: 2023Q2

REPORT INFORMATION
  Report Type: Report from Study
  Country: US (occurrence: US)
  Receive Date: 20220914
  Receipt Date: 20230505
  Transmission Date: 20230722
  Serious: No
  Sender: FDA-Public Use
  Company Number: US-NOVARTISTESTPH-NVSC2022US207638

PATIENT
  Age: 63 Year
  Sex: Male
  Weight: 64.4 kg

DRUGS (4)
  1. COSENTYX [Suspect]
     Active Substance: SECUKINUMAB
     Indication: Psoriatic arthropathy
     Dosage: 150 MG, QMO
     Route: 058
     Dates: start: 20220706
  2. COSENTYX [Suspect]
     Active Substance: SECUKINUMAB
     Dosage: UNK
     Route: 065
     Dates: start: 20220818
  3. COSENTYX [Suspect]
     Active Substance: SECUKINUMAB
     Dosage: 150 MG, QW (EVERY WEEK X 5 WEEKS THEN EVERY 4 WEEKS)
     Route: 058
     Dates: start: 202208
  4. COSENTYX [Suspect]
     Active Substance: SECUKINUMAB
     Dosage: 150 MG, QMO
     Route: 058
     Dates: end: 20221010

REACTIONS (12)
  - Injection site erythema [Unknown]
  - Lip blister [Recovering/Resolving]
  - Tongue coated [Unknown]
  - Feeding disorder [Unknown]
  - Tooth disorder [Unknown]
  - Lip swelling [Unknown]
  - Dyspepsia [Unknown]
  - Lip pain [Recovering/Resolving]
  - Injection site bruising [Unknown]
  - Oral candidiasis [Recovering/Resolving]
  - Arthritis [Not Recovered/Not Resolved]
  - Drug ineffective [Unknown]

NARRATIVE: CASE EVENT DATE: 20220818
